FAERS Safety Report 5421327-0 (Version None)
Quarter: 2007Q3

REPORT INFORMATION
  Report Type: 
  Country: None (occurrence: None)
  Receive Date: 20070719
  Receipt Date: 20070322
  Transmission Date: 20080115
  Serious: Yes (Hospitalization)
  Sender: FDA-Public Use
  Company Number: OMPQ-PR-0703S-0161

PATIENT
  Age: 68 Year
  Sex: Female

DRUGS (1)
  1. OMNIPAQUE 140 [Suspect]
     Indication: DRUG USE FOR UNKNOWN INDICATION
     Dosage: 95 ML, SINGLE DOSE, I.V.
     Route: 042
     Dates: start: 20070321, end: 20070321

REACTIONS (2)
  - AGITATION [None]
  - NAUSEA [None]
